FAERS Safety Report 19132193 (Version 1)
Quarter: 2021Q2

REPORT INFORMATION
  Report Type: Spontaneous
  Country: GB (occurrence: GB)
  Receive Date: 20210413
  Receipt Date: 20210413
  Transmission Date: 20210717
  Serious: Yes (Other)
  Sender: FDA-Public Use
  Company Number: GB-TEVA-2021-GB-1899821

PATIENT
  Age: 23 Year

DRUGS (2)
  1. OLANZAPINE. [Suspect]
     Active Substance: OLANZAPINE
     Indication: PRODUCT USED FOR UNKNOWN INDICATION
     Dosage: 1.25 MG, UNKNOWN
     Route: 065
     Dates: start: 2019
  2. ESCITALOPRAM [Concomitant]
     Active Substance: ESCITALOPRAM OXALATE
     Indication: PRODUCT USED FOR UNKNOWN INDICATION
     Dosage: 10 MG, UNKNOWN
     Dates: start: 2019

REACTIONS (4)
  - Insomnia [Unknown]
  - Weight increased [Unknown]
  - Brain injury [Unknown]
  - Suicidal ideation [Unknown]
